FAERS Safety Report 12599872 (Version 2)
Quarter: 2016Q4

REPORT INFORMATION
  Report Type: Report from Study
  Country: BE (occurrence: BE)
  Receive Date: 20160727
  Receipt Date: 20161101
  Transmission Date: 20170207
  Serious: Yes (Death, Other)
  Sender: FDA-Public Use
  Company Number: BE-BRISTOL-MYERS SQUIBB COMPANY-BMS-2016-061814

PATIENT
  Age: 75 Year
  Sex: Male

DRUGS (4)
  1. NIVOLUMAB [Suspect]
     Active Substance: NIVOLUMAB
     Indication: NON-SMALL CELL LUNG CANCER
     Dosage: 159 MG, Q2WK
     Route: 042
     Dates: start: 20160614
  2. ZOLPIDEM [Concomitant]
     Active Substance: ZOLPIDEM\ZOLPIDEM TARTRATE
     Indication: INSOMNIA
     Route: 065
  3. AMIODARONE [Concomitant]
     Active Substance: AMIODARONE
     Indication: ATRIAL FIBRILLATION
     Route: 065
  4. LITICAN                            /00690801/ [Concomitant]
     Active Substance: ALIZAPRIDE
     Indication: NAUSEA
     Route: 065

REACTIONS (1)
  - Malignant neoplasm progression [Fatal]

NARRATIVE: CASE EVENT DATE: 20160619
